FAERS Safety Report 6390932-X (Version None)
Quarter: 2009Q4

REPORT INFORMATION
  Report Type: 
  Country: None (occurrence: None)
  Receive Date: 20091003
  Receipt Date: 20090925
  Transmission Date: 20100525
  Serious: Yes (Hospitalization)
  Sender: FDA-Public Use
  Company Number: 2009AL006250

PATIENT
  Age: 41 Year
  Sex: Female

DRUGS (2)
  1. CARBAMAZEPINE [Suspect]
     Indication: NEURALGIA
  2. MECOBALAMIN [Concomitant]

REACTIONS (1)
  - TOXIC EPIDERMAL NECROLYSIS [None]
